FAERS Safety Report 12369455 (Version 1)
Quarter: 2016Q2

REPORT INFORMATION
  Report Type: Spontaneous
  Country: US (occurrence: None)
  Receive Date: 20160513
  Receipt Date: 20160513
  Transmission Date: 20160815
  Serious: No
  Sender: FDA-Public Use
  Company Number: None

PATIENT
  Age: 47 Year
  Sex: Male

DRUGS (1)
  1. HUMIRA [Suspect]
     Active Substance: ADALIMUMAB
     Indication: RHEUMATOID ARTHRITIS
     Dosage: 20MG EVERY 2 WEEKS SUB Q
     Route: 058
     Dates: start: 20160421, end: 20160421

REACTIONS (4)
  - Heart rate increased [None]
  - Pyrexia [None]
  - Chills [None]
  - Insomnia [None]

NARRATIVE: CASE EVENT DATE: 20160422
